FAERS Safety Report 12273424 (Version 2)
Quarter: 2016Q2

REPORT INFORMATION
  Report Type: Report from Study
  Country: US (occurrence: US)
  Receive Date: 20160415
  Receipt Date: 20160510
  Transmission Date: 20160815
  Serious: Yes (Other)
  Sender: FDA-Public Use
  Company Number: US-B.I. PHARMACEUTICALS,INC./RIDGEFIELD-2015-BI-13311BI

PATIENT
  Sex: Female

DRUGS (16)
  1. MVI [Concomitant]
     Active Substance: VITAMINS
     Indication: PRODUCT USED FOR UNKNOWN INDICATION
     Route: 065
  2. PAXIL [Concomitant]
     Active Substance: PAROXETINE HYDROCHLORIDE
     Indication: PRODUCT USED FOR UNKNOWN INDICATION
     Dosage: STRENGTH: 10MG
     Route: 065
  3. ZITHROMAX [Concomitant]
     Active Substance: AZITHROMYCIN DIHYDRATE
     Indication: PRODUCT USED FOR UNKNOWN INDICATION
     Dosage: STRENGTH: 500MG
     Route: 065
  4. PRILOSEC [Concomitant]
     Active Substance: OMEPRAZOLE MAGNESIUM
     Indication: PRODUCT USED FOR UNKNOWN INDICATION
     Dosage: FORMULATION: CAPSULES, DR, STRENGTH: 10MG
     Route: 065
  5. VITAMIN B12-FOLIC ACID [Concomitant]
     Indication: PRODUCT USED FOR UNKNOWN INDICATION
     Route: 065
  6. EUCERIN [Concomitant]
     Active Substance: ENSULIZOLE\EUCERIN\OCTINOXATE\OCTISALATE\TITANIUM DIOXIDE\ZINC OXIDE
     Indication: PRODUCT USED FOR UNKNOWN INDICATION
     Route: 065
  7. VITAMIN D3 [Concomitant]
     Active Substance: CHOLECALCIFEROL
     Indication: PRODUCT USED FOR UNKNOWN INDICATION
     Route: 065
  8. DURETIC [Concomitant]
     Indication: PRODUCT USED FOR UNKNOWN INDICATION
     Route: 065
  9. MULTIVITAMIN [Concomitant]
     Active Substance: VITAMINS
     Indication: PRODUCT USED FOR UNKNOWN INDICATION
     Route: 065
  10. VITAMIN B12 [Concomitant]
     Active Substance: CYANOCOBALAMIN
     Indication: PRODUCT USED FOR UNKNOWN INDICATION
     Route: 065
  11. GILOTRIF [Suspect]
     Active Substance: AFATINIB
     Dosage: 40 MG
     Route: 048
     Dates: start: 20150224
  12. VITAMIN D3 [Concomitant]
     Active Substance: CHOLECALCIFEROL
     Indication: PRODUCT USED FOR UNKNOWN INDICATION
     Dosage: STRENGTH: 1000 UNITS
     Route: 065
  13. BENADRYL [Concomitant]
     Active Substance: DIPHENHYDRAMINE HYDROCHLORIDE
     Indication: PRODUCT USED FOR UNKNOWN INDICATION
     Dosage: STRENGTH: 25MG
     Route: 065
  14. SEROQUEL [Concomitant]
     Active Substance: QUETIAPINE FUMARATE
     Indication: PRODUCT USED FOR UNKNOWN INDICATION
     Dosage: STRENGTH: 100MG
     Route: 065
  15. GILOTRIF [Suspect]
     Active Substance: AFATINIB
     Indication: NON-SMALL CELL LUNG CANCER
     Dosage: 40 MG
     Route: 048
     Dates: start: 20150223
  16. NORVASC [Concomitant]
     Active Substance: AMLODIPINE BESYLATE
     Indication: PRODUCT USED FOR UNKNOWN INDICATION
     Dosage: STRENGTH: 10MG
     Route: 065

REACTIONS (34)
  - Malignant neoplasm progression [Unknown]
  - Skin infection [Unknown]
  - Pleural effusion [Unknown]
  - Lacrimation increased [Unknown]
  - Glossodynia [Unknown]
  - Dry skin [Unknown]
  - Decreased appetite [Unknown]
  - Dry mouth [Unknown]
  - Poor quality sleep [Unknown]
  - Sinusitis [Unknown]
  - Alopecia [Unknown]
  - Onycholysis [Unknown]
  - Nail growth abnormal [Unknown]
  - Onychoclasis [Unknown]
  - Cough [Unknown]
  - Heart rate increased [Unknown]
  - Chest pain [Unknown]
  - Pneumonia [Unknown]
  - Stomatitis [Unknown]
  - Gingival pain [Unknown]
  - Epistaxis [Unknown]
  - Diarrhoea [Not Recovered/Not Resolved]
  - Peripheral coldness [Unknown]
  - Rash [Unknown]
  - Oedema peripheral [Unknown]
  - Oral pain [Unknown]
  - Peripheral swelling [Unknown]
  - Contusion [Unknown]
  - Rash [Not Recovered/Not Resolved]
  - Vomiting [Unknown]
  - Cheilitis [Unknown]
  - Dysgeusia [Unknown]
  - Weight decreased [Unknown]
  - Faeces discoloured [Unknown]
